FAERS Safety Report 5473177-7 (Version None)
Quarter: 2007Q4

REPORT INFORMATION
  Report Type: 
  Country: None (occurrence: None)
  Receive Date: 20071001
  Receipt Date: 20070921
  Transmission Date: 20080405
  Serious: Yes (Other)
  Sender: FDA-Public Use
  Company Number: JP-MERCK-0709USA03505

PATIENT
  Age: 77 Year
  Sex: Female

DRUGS (6)
  1. COZAAR [Suspect]
     Route: 048
  2. LASIX [Suspect]
     Route: 065
  3. URSO 250 [Concomitant]
     Route: 048
  4. THYRADIN [Concomitant]
     Route: 048
  5. RABEPRAZOLE SODIUM [Concomitant]
     Route: 048
  6. KALGUT [Concomitant]
     Route: 048

REACTIONS (1)
  - PANCYTOPENIA [None]
